FAERS Safety Report 4724934-3 (Version None)
Quarter: 2005Q3

REPORT INFORMATION
  Report Type: 
  Country: None (occurrence: None)
  Receive Date: 20050721
  Receipt Date: 20050708
  Transmission Date: 20060218
  Serious: Yes (Other)
  Sender: FDA-Public Use
  Company Number: 2005099247

PATIENT
  Age: 65 Year
  Sex: Female
  Weight: 58 kg

DRUGS (7)
  1. LIPITOR [Suspect]
     Indication: HYPERCHOLESTEROLAEMIA
     Dosage: 20 MG, ORAL
     Route: 048
     Dates: start: 20030614, end: 20041026
  2. GAVISCON LIQUID (ALUMINIUM HYDROXIDE, CALCIUM CARBONATE, SODIUM ALGINA [Concomitant]
  3. ASPIRIN [Concomitant]
  4. ZESTRIL [Concomitant]
  5. LANSOPRAZOLE [Concomitant]
  6. BONEFOS ^ASTRA^ (CLODRONATE DISODIUM) [Concomitant]
  7. FUROSEMIDE [Concomitant]

REACTIONS (6)
  - ALANINE AMINOTRANSFERASE INCREASED [None]
  - BLOOD ALKALINE PHOSPHATASE INCREASED [None]
  - BLOOD BILIRUBIN INCREASED [None]
  - GAMMA-GLUTAMYLTRANSFERASE INCREASED [None]
  - JAUNDICE [None]
  - PALMAR ERYTHEMA [None]
